FAERS Safety Report 4920592-3 (Version None)
Quarter: 2006Q1

REPORT INFORMATION
  Report Type: 
  Country: None (occurrence: None)
  Receive Date: 20060223
  Receipt Date: 20040617
  Transmission Date: 20060701
  Serious: Yes (Hospitalization)
  Sender: FDA-Public Use
  Company Number: FR-AVENTIS-200412377FR

PATIENT
  Age: 56 Year
  Sex: Male
  Weight: 48 kg

DRUGS (11)
  1. DOCETAXEL [Suspect]
     Indication: NEOPLASM MALIGNANT
     Route: 042
     Dates: start: 20030618, end: 20030730
  2. RADIOTHERAPY [Suspect]
     Indication: NEOPLASM MALIGNANT
     Dates: start: 20030618, end: 20030807
  3. SPECIAFOLDINE [Concomitant]
     Indication: ANAEMIA
     Route: 048
  4. ATHYMIL [Concomitant]
     Indication: ANXIETY
     Route: 048
  5. SERESTA [Concomitant]
     Indication: ANXIETY
     Route: 048
  6. ACETAMINOPHEN [Concomitant]
     Indication: GASTROINTESTINAL MUCOSAL NECROSIS
  7. ACETAMINOPHEN [Concomitant]
     Indication: PAIN
  8. TRANSIPEG [Concomitant]
     Indication: CONSTIPATION
     Route: 048
  9. VITAMIN B1 AND B6 [Concomitant]
     Indication: ANAEMIA
     Route: 048
  10. PLAVIX [Concomitant]
     Indication: ARTERITIS
     Route: 048
     Dates: start: 20030601
  11. TPN [Concomitant]
     Indication: MALNUTRITION

REACTIONS (6)
  - APHAGIA [None]
  - ASTHENIA [None]
  - OSTEITIS [None]
  - OSTEONECROSIS [None]
  - STOMATITIS NECROTISING [None]
  - WEIGHT DECREASED [None]
